FAERS Safety Report 6661142-3 (Version None)
Quarter: 2010Q1

REPORT INFORMATION
  Report Type: 
  Country: None (occurrence: None)
  Receive Date: 20100331
  Receipt Date: 20100325
  Transmission Date: 20100710
  Serious: Yes (Hospitalization)
  Sender: FDA-Public Use
  Company Number: A0809087A

PATIENT
  Age: 63 Year
  Sex: Female
  Weight: 74.1 kg

DRUGS (1)
  1. AVANDIA [Suspect]
     Route: 048
     Dates: start: 20030725, end: 20061114

REACTIONS (9)
  - ANAEMIA [None]
  - BUNDLE BRANCH BLOCK [None]
  - ELECTROLYTE IMBALANCE [None]
  - MYOCARDIAL INFARCTION [None]
  - PALPITATIONS [None]
  - PERIPHERAL ARTERIAL OCCLUSIVE DISEASE [None]
  - RENAL FAILURE ACUTE [None]
  - SYNCOPE [None]
  - VENTRICULAR TACHYCARDIA [None]
